FAERS Safety Report 9519688 (Version 1)
Quarter: 2013Q1

REPORT INFORMATION
  Report Type: Spontaneous
  Country: US (occurrence: None)
  Receive Date: 20130305
  Receipt Date: 20130305
  Transmission Date: 20140127
  Serious: Yes (Other)
  Sender: FDA-Public Use
  Company Number: 163-21880-12121878

PATIENT
  Age: 64 Year
  Sex: Male
  Weight: 108.86 kg

DRUGS (8)
  1. REVLIMID [Suspect]
     Indication: PLASMA CELL MYELOMA
     Dosage: 10 MG, 1 IN 1 D, PO
     Route: 048
     Dates: start: 20090710
  2. AMIODARONE HCL (AMIODARONE HYDROCHLORIDE) (UNKNOWN) [Concomitant]
  3. ATENOLOL (ATENOLOL) (TABLETS) [Concomitant]
  4. CELEXA (CITALOPRAM HYDROBROMIDE) (TABLETS) [Concomitant]
  5. COUMADIN (WARFARIN SODIUM) (TABLETS) [Concomitant]
  6. GLUCOPHAGE (UNKNOWN) [Concomitant]
  7. LIPITOR (ATORVASTATIN) (TABLETS)? [Concomitant]
  8. LOPERAMIDE (LOPERAMIDE) (TABLETS) [Concomitant]

REACTIONS (3)
  - Bone lesion [None]
  - Laboratory test abnormal [None]
  - Musculoskeletal pain [None]
